FAERS Safety Report 6268076-7 (Version None)
Quarter: 2009Q3

REPORT INFORMATION
  Report Type: 
  Country: None (occurrence: None)
  Receive Date: 20090713
  Receipt Date: 20090702
  Transmission Date: 20100115
  Serious: Yes (Death, Other)
  Sender: FDA-Public Use
  Company Number: 2008-00434

PATIENT
  Age: 71 Year
  Sex: Female
  Weight: 55 kg

DRUGS (21)
  1. VELCADE [Suspect]
     Indication: MULTIPLE MYELOMA
     Dosage: 1.9 MG, INTRAVENOUS, 1,5 MG, INTRAVENOUS
     Route: 042
     Dates: start: 20070508, end: 20070518
  2. VELCADE [Suspect]
     Indication: MULTIPLE MYELOMA
     Dosage: 1.9 MG, INTRAVENOUS, 1,5 MG, INTRAVENOUS
     Route: 042
     Dates: start: 20070605, end: 20070615
  3. METHYCOBAL (MECOBALAMIN) [Concomitant]
  4. DIFLUCAN [Concomitant]
  5. ITRACONAZOLE [Concomitant]
  6. MEROPEN (MEROPENEM) [Concomitant]
  7. RED BLOOD CELLS [Concomitant]
  8. PLATELETS [Concomitant]
  9. CANDESARTAN CILEXETIL [Concomitant]
  10. MAGNESIUM OXIDE (MAGNESIUM OXIDE) [Concomitant]
  11. LENDORM [Concomitant]
  12. VALTREX [Concomitant]
  13. BIOFERMIN R (STREPTOCOCCUS FAECALIS) [Concomitant]
  14. MAXIPIME [Concomitant]
  15. LEVOFLOXACIN [Concomitant]
  16. SELBEX (TEPRENONE) [Concomitant]
  17. NORVASC [Concomitant]
  18. SULFAMETHOXAZOLE AND TRIMETHOPRIM [Concomitant]
  19. STADERM (IBUPROFEN PICONOL) [Concomitant]
  20. ACETAMINOPHEN [Concomitant]
  21. RISEDRONATE SODIJM (RISEDRONATE SODIUM) [Concomitant]

REACTIONS (4)
  - CARDIOMEGALY [None]
  - DISEASE PROGRESSION [None]
  - PANCYTOPENIA [None]
  - VENTRICULAR EXTRASYSTOLES [None]
